FAERS Safety Report 12667264 (Version 1)
Quarter: 2016Q3

REPORT INFORMATION
  Report Type: Spontaneous
  Country: US (occurrence: None)
  Receive Date: 20160818
  Receipt Date: 20160818
  Transmission Date: 20161109
  Serious: Yes (Hospitalization, Other)
  Sender: FDA-Public Use
  Company Number: None

PATIENT
  Age: 52 Year
  Sex: Female
  Weight: 83.92 kg

DRUGS (1)
  1. MESTINON [Suspect]
     Active Substance: PYRIDOSTIGMINE BROMIDE
     Indication: MYASTHENIA GRAVIS

REACTIONS (8)
  - Chills [None]
  - Cholinergic syndrome [None]
  - Flushing [None]
  - Diplopia [None]
  - Intermediate syndrome [None]
  - Sputum increased [None]
  - Feeling hot [None]
  - Product label issue [None]

NARRATIVE: CASE EVENT DATE: 20160804
